FAERS Safety Report 5948296-9 (Version None)
Quarter: 2008Q4

REPORT INFORMATION
  Report Type: 
  Country: None (occurrence: None)
  Receive Date: 20081110
  Receipt Date: 20081110
  Transmission Date: 20090506
  Serious: Yes (Life-Threatening)
  Sender: FDA-Public Use
  Company Number: None

PATIENT
  Age: 63 Year
  Sex: Male
  Weight: 92.9874 kg

DRUGS (1)
  1. SINGULAIR [Suspect]
     Indication: RESPIRATORY TRACT INFECTION
     Dosage: 1 DAILY PO
     Route: 048
     Dates: start: 19980129, end: 20081109

REACTIONS (1)
  - UPPER RESPIRATORY TRACT INFECTION [None]
